FAERS Safety Report 4661099-0 (Version None)
Quarter: 2005Q2

REPORT INFORMATION
  Report Type: 
  Country: None (occurrence: None)
  Receive Date: 20050511
  Receipt Date: 20050428
  Transmission Date: 20051028
  Serious: Yes (Other)
  Sender: FDA-Public Use
  Company Number: 2005063100

PATIENT
  Age: 44 Year
  Sex: Male

DRUGS (7)
  1. EPANUTIN (PHENYTOIN SODIUM) [Suspect]
     Indication: EPILEPSY
     Dosage: 300 MG (300 MG, 1 IN 1 D), ORAL
     Route: 048
  2. DICLOFENAC SODIUM [Suspect]
     Indication: ARTHRITIS
  3. THIAMINE [Concomitant]
  4. CHLORDIAZEPOXIDE [Concomitant]
  5. PROPRANOLOL [Concomitant]
  6. NITRAZEPAM [Concomitant]
  7. VITAMIN B COMPLEX CAP [Concomitant]

REACTIONS (6)
  - CONVULSION [None]
  - DIZZINESS [None]
  - DRUG INEFFECTIVE [None]
  - FEELING ABNORMAL [None]
  - MEMORY IMPAIRMENT [None]
  - PARANOIA [None]
